FAERS Safety Report 5915411-2 (Version None)
Quarter: 2008Q4

REPORT INFORMATION
  Report Type: 
  Country: None (occurrence: None)
  Receive Date: 20081010
  Receipt Date: 20080928
  Transmission Date: 20090506
  Serious: Yes (Other)
  Sender: FDA-Public Use
  Company Number: DE-JNJFOC-20080906393

PATIENT
  Sex: Female
  Weight: 2.65 kg

DRUGS (1)
  1. TOPAMAX [Suspect]
     Indication: DRUG EXPOSURE DURING PREGNANCY

REACTIONS (10)
  - CONGENITAL BOWING OF LONG BONES [None]
  - CONGENITAL FOOT MALFORMATION [None]
  - CONGENITAL HAND MALFORMATION [None]
  - CONGENITAL MUSCULOSKELETAL ANOMALY [None]
  - DYSMORPHISM [None]
  - DYSPLASIA [None]
  - MACROGLOSSIA [None]
  - PREMATURE BABY [None]
  - SKULL MALFORMATION [None]
  - SPINE MALFORMATION [None]
